FAERS Safety Report 13103675 (Version 1)
Quarter: 2017Q1

REPORT INFORMATION
  Report Type: Spontaneous
  Country: GB (occurrence: GB)
  Receive Date: 20170111
  Receipt Date: 20170111
  Transmission Date: 20170428
  Serious: Yes (Hospitalization)
  Sender: FDA-Public Use
  Company Number: GB-ACCORD-047252

PATIENT
  Age: 51 Year
  Sex: Male

DRUGS (6)
  1. SERTRALINE [Suspect]
     Active Substance: SERTRALINE HYDROCHLORIDE
     Indication: DEPRESSION
     Route: 048
  2. CODEINE [Concomitant]
     Active Substance: CODEINE
  3. MIRTAZAPINE. [Concomitant]
     Active Substance: MIRTAZAPINE
  4. CLENIL MODULITE [Concomitant]
     Active Substance: BECLOMETHASONE DIPROPIONATE
  5. GABAPENTIN. [Concomitant]
     Active Substance: GABAPENTIN
  6. SALBUTAMOL [Concomitant]
     Active Substance: ALBUTEROL

REACTIONS (2)
  - Cerebrovascular accident [Unknown]
  - Electrocardiogram QT prolonged [Recovering/Resolving]
